FAERS Safety Report 9348426 (Version 1)
Quarter: 2013Q2

REPORT INFORMATION
  Report Type: Report from Study
  Country: CA (occurrence: CA)
  Receive Date: 20130614
  Receipt Date: 20130614
  Transmission Date: 20140414
  Serious: Yes (Other)
  Sender: FDA-Public Use
  Company Number: CA-ROCHE-1235518

PATIENT
  Sex: Female
  Weight: 59 kg

DRUGS (7)
  1. XELODA [Suspect]
     Indication: PANCREATIC CARCINOMA METASTATIC
     Dosage: DAILY
     Route: 048
     Dates: start: 20130429, end: 20130511
  2. LYRICA [Concomitant]
  3. HYDROMORPHONE [Concomitant]
  4. FRAGMIN [Concomitant]
  5. TECTA [Concomitant]
  6. METOCLOPRAMIDE [Concomitant]
  7. DOCUSATE SODIUM [Concomitant]

REACTIONS (2)
  - Eastern Cooperative Oncology Group performance status worsened [Unknown]
  - Asthenia [Unknown]
